FAERS Safety Report 9151905 (Version 1)
Quarter: 2013Q1

REPORT INFORMATION
  Report Type: Report from Study
  Country: DE (occurrence: DE)
  Receive Date: 20130308
  Receipt Date: 20130308
  Transmission Date: 20140127
  Serious: Yes (Hospitalization)
  Sender: FDA-Public Use
  Company Number: DE-ABBOTT-13P-062-1057335-00

PATIENT
  Sex: Female

DRUGS (2)
  1. HUMIRA (ABBOTT) [Suspect]
     Indication: RHEUMATOID ARTHRITIS
     Route: 058
     Dates: start: 20120217, end: 20130115
  2. CORTISONE [Concomitant]
     Indication: PRODUCT USED FOR UNKNOWN INDICATION

REACTIONS (3)
  - Lymphadenopathy [Unknown]
  - Tuberculosis [Not Recovered/Not Resolved]
  - Rheumatoid arthritis [Unknown]
